FAERS Safety Report 10381590 (Version 1)
Quarter: 2014Q3

REPORT INFORMATION
  Report Type: Spontaneous
  Country: FR (occurrence: FR)
  Receive Date: 20140813
  Receipt Date: 20140813
  Transmission Date: 20150326
  Serious: Yes (Other)
  Sender: FDA-Public Use
  Company Number: FR-009507513-1408FRA004149

PATIENT
  Age: 24 Year
  Sex: Female

DRUGS (4)
  1. ESMERON [Suspect]
     Active Substance: ROCURONIUM BROMIDE
     Indication: INDUCTION OF ANAESTHESIA
     Dosage: 70 MG, ONCE
     Route: 040
     Dates: start: 20140430, end: 20140430
  2. CEFAMANDOLE [Suspect]
     Active Substance: CEFAMANDOLE
     Indication: PROPHYLAXIS
     Dosage: 2 DF, ONCE
     Route: 042
     Dates: start: 20140430
  3. SUFENTANIL [Suspect]
     Active Substance: SUFENTANIL
     Indication: INDUCTION OF ANAESTHESIA
     Dosage: 25 MICROGRAM, ONCE
     Route: 040
     Dates: start: 20140430, end: 20140430
  4. PROPOFOL. [Suspect]
     Active Substance: PROPOFOL
     Indication: INDUCTION OF ANAESTHESIA
     Dosage: 180 MG, ONCE
     Route: 040
     Dates: start: 20140430, end: 20140430

REACTIONS (2)
  - Urticaria [Recovered/Resolved]
  - Anaphylactic reaction [Recovered/Resolved]

NARRATIVE: CASE EVENT DATE: 20140430
